FAERS Safety Report 8371901-7 (Version None)
Quarter: 2012Q2

REPORT INFORMATION
  Report Type: 
  Country: None (occurrence: None)
  Receive Date: 20120518
  Receipt Date: 20120517
  Transmission Date: 20120825
  Serious: Yes (Hospitalization, Other)
  Sender: FDA-Public Use
  Company Number: US-ROCHE-1070003

PATIENT
  Sex: Female

DRUGS (5)
  1. PREDNISONE [Concomitant]
  2. ACTEMRA [Suspect]
     Indication: RHEUMATOID ARTHRITIS
     Route: 042
     Dates: start: 20101006, end: 20111107
  3. CELEBREX [Concomitant]
  4. METHOTREXATE [Concomitant]
  5. PLAQUENIL [Concomitant]

REACTIONS (4)
  - HIP FRACTURE [None]
  - POSTOPERATIVE WOUND INFECTION [None]
  - BLOOD ELECTROLYTES DECREASED [None]
  - HYPERTENSION [None]
